FAERS Safety Report 8842802 (Version 1)
Quarter: 2012Q4

REPORT INFORMATION
  Report Type: 
  Country: US (occurrence: US)
  Receive Date: 20121016
  Receipt Date: 20121016
  Transmission Date: 20130627
  Serious: Yes (Other)
  Sender: FDA-Public Use
  Company Number: US-COVIDIEN/TYCO HEALTHCARE/MALLINCKRODT-T201203623

PATIENT
  Age: 66 Year
  Sex: Male

DRUGS (5)
  1. FLUOXETINE [Suspect]
     Indication: DEPRESSION
     Dosage: 60 mg per day
  2. FLUOXETINE [Suspect]
     Indication: ANXIETY
     Dosage: 20 mg/day
  3. FLUOXETINE [Suspect]
     Dosage: 20 mg/day, increased in increments of 10/mg/day q 6-8 weeks
  4. TRAZODONE [Concomitant]
     Indication: INSOMNIA
     Dosage: 50 mg/day
  5. CARBIDOPA/LEVODOPA [Concomitant]
     Indication: PARKINSON^S DISEASE
     Dosage: 25/100 tid

REACTIONS (1)
  - Tardive dyskinesia [Recovered/Resolved]
